FAERS Safety Report 13902414 (Version 2)
Quarter: 2018Q3

REPORT INFORMATION
  Report Type: Spontaneous
  Country: US (occurrence: US)
  Receive Date: 20170824
  Receipt Date: 20180920
  Transmission Date: 20181010
  Serious: Yes (Hospitalization)
  Sender: FDA-Public Use
  Company Number: US-CIPLA LTD.-2017US14786

PATIENT

DRUGS (1)
  1. GEMCITABINE [Suspect]
     Active Substance: GEMCITABINE\GEMCITABINE HYDROCHLORIDE
     Indication: PANCREATIC CARCINOMA
     Dosage: UNK, 4 CYCLES
     Route: 065

REACTIONS (5)
  - Acute kidney injury [Recovering/Resolving]
  - Left ventricular failure [Unknown]
  - Thrombotic microangiopathy [Recovering/Resolving]
  - Hypertension [Unknown]
  - Pulmonary oedema [Unknown]
